FAERS Safety Report 16557327 (Version 1)
Quarter: 2019Q3

REPORT INFORMATION
  Report Type: Report from Study
  Country: IT (occurrence: IT)
  Receive Date: 20190711
  Receipt Date: 20190711
  Transmission Date: 20191004
  Serious: Yes (Other)
  Sender: FDA-Public Use
  Company Number: IT-PFIZER INC-2019291259

PATIENT
  Age: 36 Year
  Sex: Female

DRUGS (6)
  1. CITALOPRAM [Concomitant]
     Active Substance: CITALOPRAM HYDROBROMIDE
  2. ZOELY [Concomitant]
     Active Substance: ESTRADIOL\NOMEGESTROL ACETATE
  3. DEPAKIN [Concomitant]
     Active Substance: VALPROATE SODIUM
  4. MESALAZINE [Concomitant]
     Active Substance: MESALAMINE
  5. VENLAFAXINE [Concomitant]
     Active Substance: VENLAFAXINE HYDROCHLORIDE
  6. XANAX [Suspect]
     Active Substance: ALPRAZOLAM
     Dosage: 80 GTT, TOTAL
     Route: 048
     Dates: start: 20190118, end: 20190118

REACTIONS (3)
  - Drug abuse [Recovered/Resolved]
  - Toxicity to various agents [Recovered/Resolved]
  - Sopor [Recovered/Resolved]

NARRATIVE: CASE EVENT DATE: 20190118
